FAERS Safety Report 4589626-2 (Version None)
Quarter: 2005Q1

REPORT INFORMATION
  Report Type: 
  Country: None (occurrence: None)
  Receive Date: 20050223
  Receipt Date: 20050208
  Transmission Date: 20050727
  Serious: Yes (Other)
  Sender: FDA-Public Use
  Company Number: CA-MERCK-0502CAN00048

PATIENT
  Sex: Female

DRUGS (2)
  1. VIOXX [Suspect]
     Indication: INTERVERTEBRAL DISC DEGENERATION
     Route: 048
     Dates: start: 19990101
  2. VIOXX [Suspect]
     Indication: ROTATOR CUFF SYNDROME
     Route: 048
     Dates: start: 19990101

REACTIONS (4)
  - ADVERSE EVENT [None]
  - ASTHENIA [None]
  - CEREBROVASCULAR ACCIDENT [None]
  - IMPAIRED WORK ABILITY [None]
